FAERS Safety Report 14256699 (Version 1)
Quarter: 2017Q4

REPORT INFORMATION
  Report Type: Spontaneous
  Country: DE (occurrence: DE)
  Receive Date: 20171206
  Receipt Date: 20171206
  Transmission Date: 20180321
  Serious: Yes (Hospitalization, Other)
  Sender: FDA-Public Use
  Company Number: DE-PFIZER INC-2017518280

PATIENT
  Age: 66 Year
  Sex: Female

DRUGS (5)
  1. POLIOMYELITIS VACCINE NOS [Suspect]
     Active Substance: POLIOMYELITIS VACCINE
     Indication: IMMUNISATION
     Dosage: UNK
     Route: 065
     Dates: start: 20110204, end: 20110204
  2. THYROXIN [Concomitant]
     Active Substance: LEVOTHYROXINE
     Dosage: UNK
  3. RAMIPRIL. [Suspect]
     Active Substance: RAMIPRIL
     Dosage: UNK
     Route: 065
  4. JODID [Concomitant]
     Active Substance: IODINE
     Dosage: UNK
  5. HYDROCHLOROTHIAZID [Concomitant]
     Active Substance: HYDROCHLOROTHIAZIDE
     Dosage: UNK

REACTIONS (13)
  - Dermatomyositis [Unknown]
  - Drug eruption [Unknown]
  - Rash [Unknown]
  - Alopecia [Unknown]
  - Skin disorder [Unknown]
  - Pruritus [Unknown]
  - Pruritus [Unknown]
  - Skin plaque [Unknown]
  - Lupus-like syndrome [Unknown]
  - Skin disorder [Unknown]
  - Cutaneous lupus erythematosus [Unknown]
  - Lichenoid keratosis [Unknown]
  - Skin exfoliation [Unknown]

NARRATIVE: CASE EVENT DATE: 2011
